FAERS Safety Report 7672370-2 (Version None)
Quarter: 2011Q3

REPORT INFORMATION
  Report Type: 
  Country: None (occurrence: None)
  Receive Date: 20110803
  Receipt Date: 20110727
  Transmission Date: 20111222
  Serious: Yes (Other)
  Sender: FDA-Public Use
  Company Number: 2011SP035323

PATIENT
  Age: 63 Year
  Sex: Female

DRUGS (4)
  1. SYNTHROID [Concomitant]
  2. ASCORBIC ACID [Concomitant]
  3. NASONEX [Suspect]
     Indication: POLYP
     Dosage: 2 DF;BID;
     Dates: start: 19960101
  4. NASONEX [Suspect]
     Indication: POLYP
     Dosage: 2 DF;BID;
     Dates: end: 20110101

REACTIONS (10)
  - HEADACHE [None]
  - NO THERAPEUTIC RESPONSE [None]
  - ANOSMIA [None]
  - INFLUENZA LIKE ILLNESS [None]
  - DRUG EFFECT DECREASED [None]
  - SINUS HEADACHE [None]
  - FACIAL PAIN [None]
  - EXPIRED DRUG ADMINISTERED [None]
  - NEOPLASM MALIGNANT [None]
  - NECK PAIN [None]
